FAERS Safety Report 5182650-0 (Version None)
Quarter: 2006Q4

REPORT INFORMATION
  Report Type: 
  Country: None (occurrence: None)
  Receive Date: 20061220
  Receipt Date: 20061208
  Transmission Date: 20070319
  Serious: Yes (Other)
  Sender: FDA-Public Use
  Company Number: PHMT2006CA02277

PATIENT
  Age: 39 Year
  Sex: Female

DRUGS (1)
  1. VOLTAREN [Suspect]
     Dosage: UNK, UNK
     Route: 048
     Dates: start: 20060901

REACTIONS (2)
  - BLISTER [None]
  - PSEUDOPORPHYRIA [None]
